FAERS Safety Report 8184496-8 (Version None)
Quarter: 2012Q1

REPORT INFORMATION
  Report Type: 
  Country: None (occurrence: None)
  Receive Date: 20120305
  Receipt Date: 20120223
  Transmission Date: 20120608
  Serious: Yes (Hospitalization, Other)
  Sender: FDA-Public Use
  Company Number: CA-ROCHE-1040457

PATIENT
  Sex: Male

DRUGS (8)
  1. LANTUS [Concomitant]
     Dates: start: 20090101
  2. PERINDOPRIL ERBUMINE [Concomitant]
     Dates: start: 20070101, end: 20111117
  3. FUROSEMIDE [Concomitant]
  4. AMLODIPINE [Concomitant]
  5. RANIBIZUMAB [Suspect]
     Indication: DIABETIC RETINAL OEDEMA
     Route: 050
     Dates: start: 20090627, end: 20110929
  6. LEVOTHYROXINE SODIUM [Concomitant]
  7. HUMALOG [Concomitant]
     Dates: start: 20070101
  8. ATORVASTATIN [Concomitant]
     Dates: start: 20080101

REACTIONS (4)
  - DISEASE PROGRESSION [None]
  - HYPERTENSION [None]
  - HYPERCHOLESTEROLAEMIA [None]
  - CEREBROVASCULAR ACCIDENT [None]
